FAERS Safety Report 16053496 (Version 5)
Quarter: 2020Q3

REPORT INFORMATION
  Report Type: Spontaneous
  Country: US (occurrence: US)
  Receive Date: 20190308
  Receipt Date: 20200819
  Transmission Date: 20201102
  Serious: No
  Sender: FDA-Public Use
  Company Number: US-PFIZER INC-2019100262

PATIENT
  Age: 54 Year
  Sex: Female
  Weight: 91.17 kg

DRUGS (2)
  1. XELJANZ XR [Suspect]
     Active Substance: TOFACITINIB CITRATE
     Indication: RHEUMATOID ARTHRITIS
     Dosage: 11 MG, 1X/DAY
     Route: 048
     Dates: start: 201812
  2. XELJANZ XR [Suspect]
     Active Substance: TOFACITINIB CITRATE
     Indication: PSORIATIC ARTHROPATHY
     Dosage: 11 MG, 1X/DAY
     Route: 048
     Dates: end: 20200407

REACTIONS (6)
  - SARS-CoV-2 test positive [Recovered/Resolved]
  - Oropharyngeal pain [Recovering/Resolving]
  - Alopecia [Unknown]
  - Nasopharyngitis [Not Recovered/Not Resolved]
  - Aphonia [Not Recovered/Not Resolved]
  - Illness [Unknown]

NARRATIVE: CASE EVENT DATE: 201901
